FAERS Safety Report 7459154-5 (Version None)
Quarter: 2011Q2

REPORT INFORMATION
  Report Type: 
  Country: None (occurrence: None)
  Receive Date: 20110505
  Receipt Date: 20110428
  Transmission Date: 20111010
  Serious: No
  Sender: FDA-Public Use
  Company Number: US-BIOGENIDEC-2011BI016271

PATIENT
  Age: 41 Year
  Sex: Female

DRUGS (3)
  1. TYSABRI [Suspect]
     Route: 042
     Dates: start: 20050215, end: 20050215
  2. TYSABRI [Suspect]
     Route: 042
     Dates: start: 20090312, end: 20100628
  3. TYSABRI [Suspect]
     Indication: MULTIPLE SCLEROSIS
     Route: 042
     Dates: start: 20110407

REACTIONS (3)
  - MOBILITY DECREASED [None]
  - PAIN IN EXTREMITY [None]
  - ASTHENIA [None]
